FAERS Safety Report 5960170-0 (Version None)
Quarter: 2008Q4

REPORT INFORMATION
  Report Type: 
  Country: None (occurrence: None)
  Receive Date: 20081120
  Receipt Date: 20081112
  Transmission Date: 20090506
  Serious: Yes (Hospitalization)
  Sender: FDA-Public Use
  Company Number: US-ELI_LILLY_AND_COMPANY-US200808003070

PATIENT
  Sex: Female

DRUGS (18)
  1. BYETTA [Suspect]
     Indication: TYPE 2 DIABETES MELLITUS
     Dosage: 5 UG, 2/D
     Route: 058
     Dates: start: 20080501, end: 20080601
  2. BYETTA [Suspect]
     Dosage: 10 UG, 2/D
     Route: 058
     Dates: start: 20080601
  3. BYETTA [Suspect]
     Dosage: 10 UG, 2/D
     Route: 058
  4. BYETTA [Suspect]
     Dosage: 10 UG, 2/D
     Route: 058
  5. METFORMIN HCL [Concomitant]
     Indication: TYPE 2 DIABETES MELLITUS
     Dosage: 1500 MG, EACH MORNING
     Route: 048
  6. METFORMIN HCL [Concomitant]
     Dosage: 1000 MG, EACH EVENING
     Route: 048
  7. AVANDIA [Concomitant]
     Indication: TYPE 2 DIABETES MELLITUS
     Dosage: 8 MG, DAILY (1/D)
     Route: 048
  8. GLYBURIDE [Concomitant]
     Indication: TYPE 2 DIABETES MELLITUS
     Dosage: 7.5 MG, 2/D
     Route: 048
     Dates: end: 20080701
  9. GLYBURIDE [Concomitant]
     Dosage: 5 MG, 2/D
     Route: 048
     Dates: start: 20080701, end: 20080801
  10. VASOTEC [Concomitant]
     Dosage: 10 MG, DAILY (1/D)
     Route: 048
  11. COUMADIN [Concomitant]
     Indication: PULMONARY EMBOLISM
     Dosage: UNK, DAILY (1/D)
     Dates: start: 20040101
  12. LOPRESSOR [Concomitant]
     Dosage: 50 MG, DAILY (1/D)
     Route: 048
  13. VYTORIN [Concomitant]
     Indication: BLOOD CHOLESTEROL INCREASED
     Dosage: UNK, DAILY (1/D)
     Route: 048
  14. NEURONTIN [Concomitant]
     Indication: PAIN IN EXTREMITY
     Dosage: 200 MG, DAILY (1/D)
     Route: 048
     Dates: start: 20070101
  15. FERROUS SULFATE [Concomitant]
     Indication: BLOOD IRON DECREASED
     Dosage: 325 MG, 2/D
     Route: 048
     Dates: start: 20040101
  16. ASCORBIC ACID [Concomitant]
     Dosage: UNK, DAILY (1/D)
     Route: 048
  17. MULTI-VITAMINS [Concomitant]
     Dosage: UNK, DAILY (1/D)
     Route: 048
  18. ZOCOR [Concomitant]
     Indication: BLOOD CHOLESTEROL INCREASED

REACTIONS (7)
  - BLOOD GLUCOSE DECREASED [None]
  - BLOOD GLUCOSE INCREASED [None]
  - CHOLELITHIASIS [None]
  - DECREASED APPETITE [None]
  - DIZZINESS [None]
  - PROCEDURAL PAIN [None]
  - WEIGHT DECREASED [None]
